FAERS Safety Report 7713458-7 (Version None)
Quarter: 2011Q3

REPORT INFORMATION
  Report Type: 
  Country: None (occurrence: None)
  Receive Date: 20110826
  Receipt Date: 20110819
  Transmission Date: 20111222
  Serious: Yes (Other)
  Sender: FDA-Public Use
  Company Number: JP-PFIZER INC-2011192764

PATIENT
  Sex: Male

DRUGS (1)
  1. XALATAN [Suspect]
     Dosage: ONCE DAILY FOR BOTH EYES
     Route: 047

REACTIONS (3)
  - CONJUNCTIVAL HYPERAEMIA [None]
  - CORNEAL BLEEDING [None]
  - EYE IRRITATION [None]
